FAERS Safety Report 15957248 (Version 1)
Quarter: 2019Q1

REPORT INFORMATION
  Report Type: Spontaneous
  Country: US (occurrence: US)
  Receive Date: 20190213
  Receipt Date: 20190213
  Transmission Date: 20190417
  Serious: Yes (Other)
  Sender: FDA-Public Use
  Company Number: None

PATIENT
  Sex: Female

DRUGS (1)
  1. TRAMADOL HCL 50 MILIGRAMS [Suspect]
     Active Substance: TRAMADOL HYDROCHLORIDE
     Indication: INSOMNIA
     Dosage: ?          QUANTITY:30 TABLET(S);?
     Route: 048

REACTIONS (3)
  - Agitation [None]
  - Product substitution issue [None]
  - Paradoxical drug reaction [None]

NARRATIVE: CASE EVENT DATE: 20190211
